FAERS Safety Report 10406436 (Version 1)
Quarter: 2014Q3

REPORT INFORMATION
  Report Type: Spontaneous
  Country: FR (occurrence: None)
  Receive Date: 20140821
  Receipt Date: 20140821
  Transmission Date: 20150326
  Serious: Yes (Death, Hospitalization)
  Sender: FDA-Public Use
  Company Number: CLINIGEN-003427

PATIENT
  Age: 84 Year
  Sex: Female
  Weight: 50 kg

DRUGS (6)
  1. FLUIMICIL [Concomitant]
  2. VITAMIN A /00056001/ [Concomitant]
     Active Substance: VITAMIN A
  3. TOBRABACT [Concomitant]
  4. FOSCAVIR [Suspect]
     Active Substance: FOSCARNET SODIUM
     Indication: PRODUCT USED FOR UNKNOWN INDICATION
     Dosage: INTRAVENOUS (NOT OTHERWISE SPECIFIED)?
     Route: 042
     Dates: start: 20140428, end: 20140430
  5. POLARAMINE [Concomitant]
     Active Substance: DEXCHLORPHENIRAMINE MALEATE
  6. LASILIX /00032601/ [Concomitant]
     Active Substance: FUROSEMIDE

REACTIONS (6)
  - Herpes zoster [None]
  - Altered state of consciousness [None]
  - General physical health deterioration [None]
  - Hepatic failure [None]
  - Encephalitis [None]
  - Status epilepticus [None]

NARRATIVE: CASE EVENT DATE: 20140429
